FAERS Safety Report 23273320 (Version 1)
Quarter: 2023Q4

REPORT INFORMATION
  Report Type: Report from Study
  Country: AU (occurrence: AU)
  Receive Date: 20231207
  Receipt Date: 20231207
  Transmission Date: 20240110
  Serious: Yes (Hospitalization)
  Sender: FDA-Public Use
  Company Number: AU-PFIZER INC-202300187620

PATIENT
  Age: 57 Year
  Sex: Male
  Weight: 94.9 kg

DRUGS (7)
  1. ELRANATAMAB [Suspect]
     Active Substance: ELRANATAMAB
     Indication: Plasma cell myeloma
     Dosage: 76 MG, WEEKLY
     Route: 058
     Dates: start: 20221121
  2. DARATUMUMAB [Suspect]
     Active Substance: DARATUMUMAB
     Indication: Plasma cell myeloma
     Dosage: 1800 MG, CYCLIC (EVERY 2 WEEKS)
     Route: 058
     Dates: start: 20221228
  3. VALACYCLOVIR HYDROCHLORIDE [Concomitant]
     Active Substance: VALACYCLOVIR HYDROCHLORIDE
     Indication: Antiviral prophylaxis
     Dosage: 500 MG, QD
     Route: 048
     Dates: start: 2021
  4. ESOMEPRAZOLE [Concomitant]
     Active Substance: ESOMEPRAZOLE
     Indication: Gastritis prophylaxis
     Dosage: 20 MG, QD
     Route: 048
     Dates: start: 2021
  5. APIXABAN [Concomitant]
     Active Substance: APIXABAN
     Indication: Thrombosis prophylaxis
     Dosage: 2.5 MG, BID
     Route: 048
     Dates: start: 202106, end: 20231111
  6. SULFAMETHOXAZOLE\TRIMETHOPRIM [Concomitant]
     Active Substance: SULFAMETHOXAZOLE\TRIMETHOPRIM
     Indication: Antifungal prophylaxis
     Dosage: 1 TABLET, BID
     Route: 048
     Dates: start: 2021
  7. QV [CETYL ALCOHOL;GLYCEROL;PARAFFIN] [Concomitant]
     Indication: Injection site reaction
     Dosage: 1 APPLICATION, 1X/DAY
     Route: 061
     Dates: start: 20230116, end: 20230504

REACTIONS (1)
  - Bronchitis haemophilus [Recovered/Resolved]

NARRATIVE: CASE EVENT DATE: 20230120
